FAERS Safety Report 9245913 (Version 1)
Quarter: 2013Q2

REPORT INFORMATION
  Report Type: Spontaneous
  Country: NL (occurrence: NL)
  Receive Date: 20130422
  Receipt Date: 20130422
  Transmission Date: 20140414
  Serious: Yes (Other)
  Sender: FDA-Public Use
  Company Number: NL-PFIZER INC-2013120831

PATIENT
  Age: 76 Year
  Sex: Male

DRUGS (3)
  1. SUNITINIB MALATE [Suspect]
     Indication: METASTATIC RENAL CELL CARCINOMA
     Dosage: 50 MG, 1X/DAY
  2. SUNITINIB MALATE [Suspect]
     Dosage: 25 MG, 1X/DAY
  3. SUNITINIB MALATE [Suspect]
     Dosage: 12.5 MG, 1X/DAY

REACTIONS (2)
  - Drug-induced liver injury [Recovered/Resolved]
  - Pancytopenia [Recovered/Resolved]
